FAERS Safety Report 12196671 (Version 2)
Quarter: 2016Q1

REPORT INFORMATION
  Report Type: Spontaneous
  Country: CH (occurrence: CH)
  Receive Date: 20160321
  Receipt Date: 20160329
  Transmission Date: 20160526
  Serious: Yes (Hospitalization)
  Sender: FDA-Public Use
  Company Number: CH-SEATTLE GENETICS-2016SGN00407

PATIENT

DRUGS (22)
  1. CAELYX [Suspect]
     Active Substance: DOXORUBICIN HYDROCHLORIDE
     Dosage: 60 MG, UNK
     Route: 041
     Dates: start: 20151127
  2. OLFEN                              /00372302/ [Concomitant]
     Active Substance: DICLOFENAC SODIUM
     Dosage: 75 MG, QD
     Route: 048
     Dates: end: 201602
  3. AMPHO-MORONAL [Concomitant]
     Active Substance: AMPHOTERICIN B
     Dosage: 10 MG, QID
     Route: 002
     Dates: end: 201602
  4. CAELYX [Suspect]
     Active Substance: DOXORUBICIN HYDROCHLORIDE
     Indication: MYCOSIS FUNGOIDES STAGE III
     Dosage: 50 MG, UNK
     Route: 041
     Dates: start: 20151216
  5. PANTOPRAZOL SANDOZ [Concomitant]
     Dosage: 20 MG, QD
     Route: 048
  6. RANITIDIN-MEPHA [Concomitant]
     Dosage: 300 MG, QD
     Route: 048
  7. CONDROSULF [Concomitant]
     Active Substance: CHONDROITIN SULFATE (CHICKEN)
     Dosage: 800 MG, QD
     Route: 048
  8. REMEDERM [Concomitant]
     Dosage: UNK
     Route: 061
     Dates: end: 201602
  9. FINASTERID SANDOZ [Concomitant]
     Dosage: 5 MG, QD
     Route: 048
  10. MOMETASON [Concomitant]
     Active Substance: MOMETASONE FUROATE
     Dosage: UNK
     Route: 061
  11. DYMISTA [Concomitant]
     Active Substance: AZELASTINE HYDROCHLORIDE\FLUTICASONE PROPIONATE
     Dosage: UNK
     Route: 045
     Dates: end: 201602
  12. CAELYX [Suspect]
     Active Substance: DOXORUBICIN HYDROCHLORIDE
     Dosage: 50 MG, UNK
     Route: 041
     Dates: start: 20160105
  13. EXCIPIAL U LIPOLOT [Concomitant]
     Active Substance: UREA
     Dosage: UNK
     Route: 061
  14. TEMESTA                            /00273201/ [Concomitant]
     Active Substance: LORAZEPAM
     Dosage: 1 MG, UNK
     Dates: end: 201602
  15. ADCETRIS [Suspect]
     Active Substance: BRENTUXIMAB VEDOTIN
     Indication: MYCOSIS FUNGOIDES STAGE III
     Dosage: 150 MG, Q21D
     Route: 041
     Dates: start: 20160120, end: 201602
  16. ATORVASTATIN PFIZER [Concomitant]
     Active Substance: ATORVASTATIN
     Dosage: 40 MG, QD
     Route: 048
  17. FINASTERID SANDOZ [Concomitant]
     Dosage: 5 MG, QD
     Route: 048
  18. ATARAX [Concomitant]
     Active Substance: HYDROXYZINE\HYDROXYZINE HYDROCHLORIDE
     Indication: MYCOSIS FUNGOIDES
     Dosage: 25 MG, QD
     Route: 048
     Dates: end: 201602
  19. RANITIDIN-MEPHA [Concomitant]
     Dosage: 300 MG, QD
     Route: 048
  20. LEVOCETIRIZIN [Concomitant]
     Active Substance: LEVOCETIRIZINE DIHYDROCHLORIDE
     Indication: MYCOSIS FUNGOIDES
     Dosage: UNK
  21. PANTOPRAZOL SANDOZ [Concomitant]
     Dosage: 20 MG, QD
     Route: 048
  22. ECOFENAC [Concomitant]
     Active Substance: DICLOFENAC SODIUM
     Dosage: UNK
     Dates: end: 201602

REACTIONS (3)
  - Palmar-plantar erythrodysaesthesia syndrome [Recovering/Resolving]
  - Off label use [Unknown]
  - Eczema [Recovering/Resolving]

NARRATIVE: CASE EVENT DATE: 20151127
